FAERS Safety Report 16916960 (Version 3)
Quarter: 2025Q3

REPORT INFORMATION
  Report Type: Spontaneous
  Country: EU (occurrence: EU)
  Receive Date: 20191015
  Receipt Date: 20250823
  Transmission Date: 20251021
  Serious: Yes (Hospitalization)
  Sender: AUROBINDO
  Company Number: None

PATIENT
  Age: 62 Year
  Sex: Male

DRUGS (2)
  1. VORICONAZOLE [Suspect]
     Active Substance: VORICONAZOLE
     Indication: Bronchopulmonary aspergillosis
     Dosage: 400 MILLIGRAM, EVERY OTHER DAY
     Route: 065
  2. VORICONAZOLE [Suspect]
     Active Substance: VORICONAZOLE
     Dosage: 400 MILLIGRAM, TWO TIMES A DAY (800 MG , QD)
     Route: 065

REACTIONS (2)
  - Periostitis [Recovered/Resolved]
  - Weight decreased [Recovered/Resolved]
